FAERS Safety Report 22097630 (Version 5)
Quarter: 2025Q1

REPORT INFORMATION
  Report Type: Spontaneous
  Country: US (occurrence: US)
  Receive Date: 20230315
  Receipt Date: 20250317
  Transmission Date: 20250409
  Serious: No
  Sender: PFIZER
  Company Number: US-PFIZER INC-PV202200089884

PATIENT
  Age: 67 Year
  Sex: Female
  Weight: 74.83 kg

DRUGS (2)
  1. IBRANCE [Suspect]
     Active Substance: PALBOCICLIB
     Indication: Breast cancer female
  2. IBRANCE [Suspect]
     Active Substance: PALBOCICLIB
     Route: 048

REACTIONS (5)
  - Memory impairment [Unknown]
  - Nervousness [Unknown]
  - Psychiatric symptom [Unknown]
  - Depression [Unknown]
  - Intentional product use issue [Unknown]
